FAERS Safety Report 4674120-0 (Version None)
Quarter: 2005Q2

REPORT INFORMATION
  Report Type: 
  Country: None (occurrence: None)
  Receive Date: 20050524
  Receipt Date: 20050524
  Transmission Date: 20051028
  Serious: Yes (Other)
  Sender: FDA-Public Use
  Company Number: None

PATIENT
  Age: 90 Year
  Sex: Female
  Weight: 49.8957 kg

DRUGS (1)
  1. PLAVIX [Suspect]
     Dosage: 1 TABLET   PER DAY
     Dates: start: 20050518, end: 20050522

REACTIONS (2)
  - CONTUSION [None]
  - THROMBOCYTOPENIA [None]
